FAERS Safety Report 4647429-4 (Version None)
Quarter: 2005Q2

REPORT INFORMATION
  Report Type: 
  Country: None (occurrence: None)
  Receive Date: 20050426
  Receipt Date: 20050418
  Transmission Date: 20051028
  Serious: Yes (Hospitalization)
  Sender: FDA-Public Use
  Company Number: 2005CG00767

PATIENT
  Age: 73 Year
  Sex: Female

DRUGS (16)
  1. MOPRAL [Suspect]
     Dosage: 10 MG DAILY PO
     Route: 048
  2. LEVOTHYROX [Suspect]
     Indication: HYPOTHYROIDISM
     Dosage: 125 UG DAILY PO
  3. TERALITHE [Suspect]
     Indication: BIPOLAR I DISORDER
     Dosage: 800 MG DAILY PO
     Route: 048
     Dates: start: 19970101, end: 20050107
  4. FLUOROURACIL [Suspect]
     Indication: CHEMOTHERAPY
     Dates: start: 20040928, end: 20040928
  5. FLUOROURACIL [Suspect]
     Indication: CHEMOTHERAPY
     Dates: start: 20041109, end: 20041109
  6. FLUOROURACIL [Suspect]
     Indication: CHEMOTHERAPY
     Dates: start: 20041124, end: 20041124
  7. FLUOROURACIL [Suspect]
     Indication: CHEMOTHERAPY
     Dates: start: 20041208, end: 20041208
  8. FOLINIC ACID [Suspect]
     Indication: CHEMOTHERAPY
     Dates: start: 20040928, end: 20040928
  9. FOLINIC ACID [Suspect]
     Indication: CHEMOTHERAPY
     Dates: start: 20041109, end: 20041109
  10. FOLINIC ACID [Suspect]
     Indication: CHEMOTHERAPY
     Dates: start: 20041124, end: 20041124
  11. FOLINIC ACID [Suspect]
     Indication: CHEMOTHERAPY
     Dates: start: 20041208, end: 20041208
  12. AMARYL [Suspect]
     Indication: DIABETES MELLITUS
     Dosage: 1 MG DAILY PO
     Route: 048
  13. DIFFU K [Suspect]
     Dosage: 1 DF DAILY PO
     Route: 048
     Dates: end: 20050107
  14. FORLAX [Concomitant]
  15. SPASFON-LYOC [Concomitant]
  16. TARDYFERON /GFR/ [Concomitant]

REACTIONS (14)
  - AGITATION [None]
  - ASPIRATION [None]
  - ASTHENIA [None]
  - CONFUSIONAL STATE [None]
  - DEPRESSED LEVEL OF CONSCIOUSNESS [None]
  - DYSSTASIA [None]
  - EXTRAPYRAMIDAL DISORDER [None]
  - FALL [None]
  - GENERAL PHYSICAL HEALTH DETERIORATION [None]
  - METABOLIC ENCEPHALOPATHY [None]
  - SOMNOLENCE [None]
  - TREMOR [None]
  - VOMITING [None]
  - WHITE BLOOD CELL COUNT INCREASED [None]
